FAERS Safety Report 24691237 (Version 1)
Quarter: 2024Q4

REPORT INFORMATION
  Report Type: Spontaneous
  Country: NL (occurrence: NL)
  Receive Date: 20241203
  Receipt Date: 20241203
  Transmission Date: 20250115
  Serious: Yes (Hospitalization)
  Sender: MYLAN
  Company Number: None

PATIENT
  Age: 55 Year
  Sex: Male
  Weight: 106 kg

DRUGS (9)
  1. FUROSEMIDE [Suspect]
     Active Substance: FUROSEMIDE
     Indication: Hypervolaemia
     Dosage: 40 MILLIGRAM, BID (1 PIECE TWICE A DAY)
     Route: 048
     Dates: start: 20150601, end: 20241105
  2. FOSINOPRIL [Suspect]
     Active Substance: FOSINOPRIL
     Indication: Hypertension
     Dosage: 10 DOSAGE FORM, QD (1 PIECE ONCE A DAY)
     Route: 048
     Dates: start: 20100101, end: 20241105
  3. APIXABAN [Concomitant]
     Active Substance: APIXABAN
     Dosage: 2.5 MILLIGRAM
     Route: 048
  4. EZETIMIBE [Concomitant]
     Active Substance: EZETIMIBE
     Dosage: 10 MILLIGRAM
     Route: 048
  5. SOTALOL [Concomitant]
     Active Substance: SOTALOL
     Dosage: 40 MILLIGRAM
     Route: 048
  6. THIAMINE [Concomitant]
     Active Substance: THIAMINE
     Dosage: 50 MILLIGRAM
     Route: 048
  7. ALFUZOSIN HYDROCHLORIDE [Concomitant]
     Active Substance: ALFUZOSIN HYDROCHLORIDE
     Dosage: 10 MILLIGRAM (CONTROLLED-RELEASE TABLET, 10 MG (MILLIGRAM))
     Route: 048
  8. OXYCODONE [Concomitant]
     Active Substance: OXYCODONE
     Dosage: 10 MILLIGRAM
     Route: 048
  9. CALCIUM\CHOLECALCIFEROL [Concomitant]
     Active Substance: CALCIUM\CHOLECALCIFEROL
     Dosage: UNK (CHEWABLE TABLET, 1.25 G (GRAM)/800 UNITS)
     Route: 048

REACTIONS (1)
  - Acute kidney injury [Recovering/Resolving]
